FAERS Safety Report 9682277 (Version 1)
Quarter: 2013Q4

REPORT INFORMATION
  Report Type: Report from Study
  Country: BR (occurrence: BR)
  Receive Date: 20131112
  Receipt Date: 20131112
  Transmission Date: 20140711
  Serious: Yes (Death)
  Sender: FDA-Public Use
  Company Number: BR-ROCHE-1301515

PATIENT
  Sex: 0

DRUGS (2)
  1. RIBAVIRIN [Suspect]
     Indication: HEPATITIS C
     Dosage: LESS THAN 75 KG RECEIVED 1000 MG/DAY AND MORE THAN OR EQUAL TO 75 KG WERE TREATED WITH 1250 MG/DAY
     Route: 065
  2. PEG-INTERFERON ALFA 2A [Suspect]
     Indication: HEPATITIS C
     Route: 065

REACTIONS (4)
  - Meningitis [Fatal]
  - Hepatic failure [Fatal]
  - Upper gastrointestinal haemorrhage [Fatal]
  - Sepsis [Fatal]
